FAERS Safety Report 4783175-4 (Version None)
Quarter: 2005Q3

REPORT INFORMATION
  Report Type: 
  Country: None (occurrence: None)
  Receive Date: 20050929
  Receipt Date: 20050927
  Transmission Date: 20060218
  Serious: Yes (Other)
  Sender: FDA-Public Use
  Company Number: US-GLAXOSMITHKLINE-A0576096A

PATIENT
  Age: 50 Year
  Sex: Female

DRUGS (13)
  1. LAMICTAL [Suspect]
     Indication: BIPOLAR DISORDER
     Dosage: 200MG PER DAY
     Route: 048
  2. LITHIUM [Concomitant]
  3. HYDROCHLOROTHIAZIDE [Concomitant]
  4. NIFEDIPINE [Concomitant]
  5. SINGULAIR [Concomitant]
  6. ATENOLOL [Concomitant]
  7. CLONAZEPAM [Concomitant]
  8. CELEXA [Concomitant]
  9. UNKNOWN DRUG [Concomitant]
  10. AMITRIPTYLINE HCL [Concomitant]
  11. XANAX [Concomitant]
  12. FLONASE [Concomitant]
  13. ALBUTEROL [Concomitant]

REACTIONS (4)
  - MANIA [None]
  - PRURITUS [None]
  - PYREXIA [None]
  - RASH [None]
